FAERS Safety Report 9726347 (Version 4)
Quarter: 2014Q1

REPORT INFORMATION
  Report Type: Spontaneous
  Country: US (occurrence: US)
  Receive Date: 20131203
  Receipt Date: 20140311
  Transmission Date: 20141002
  Serious: Yes (Other)
  Sender: FDA-Public Use
  Company Number: US-ABBVIE-13P-163-1174362-00

PATIENT
  Sex: Male
  Weight: 98.52 kg

DRUGS (3)
  1. DEPAKOTE [Suspect]
     Indication: CONVULSION
     Dates: end: 201209
  2. DILANTIN [Concomitant]
     Indication: CONVULSION
     Dates: start: 2009, end: 201001
  3. KEPPRA [Concomitant]
     Indication: CONVULSION

REACTIONS (7)
  - Bone decalcification [Not Recovered/Not Resolved]
  - Hip fracture [Not Recovered/Not Resolved]
  - Mobility decreased [Not Recovered/Not Resolved]
  - Osteoporosis [Recovering/Resolving]
  - Osteoporosis [Unknown]
  - Spinal fracture [Unknown]
  - Infection [Unknown]
